FAERS Safety Report 8884999 (Version 1)
Quarter: 2012Q4

REPORT INFORMATION
  Report Type: 
  Country: US (occurrence: US)
  Receive Date: 20121102
  Receipt Date: 20121102
  Transmission Date: 20130627
  Serious: No
  Sender: FDA-Public Use
  Company Number: US-PFIZER INC-2012273038

PATIENT
  Age: 44 Year
  Sex: Female
  Weight: 124.72 kg

DRUGS (8)
  1. LYRICA [Suspect]
     Indication: NERVE PAIN
     Dosage: 75 mg, 2x/day
     Route: 048
     Dates: start: 2011
  2. JANUMET [Concomitant]
     Indication: DIABETES
     Dosage: 50/1000 mg, 2x/day
  3. LEXAPRO [Concomitant]
     Indication: DEPRESSION
     Dosage: 20 mg, 1x/day
  4. LISINOPRIL [Concomitant]
     Indication: BLOOD PRESSURE HIGH
     Dosage: 20 mg, 1x/day
  5. XANAX [Concomitant]
     Indication: ANXIETY
     Dosage: 1 mg, 1x/day
  6. HYDROCODONE W/ACETAMINOPHEN [Concomitant]
     Indication: PAIN
     Dosage: 10/500 mg, 4x/day
  7. HYDROCODONE W/ACETAMINOPHEN [Concomitant]
     Indication: BACKACHE
  8. ASPIRIN [Concomitant]
     Dosage: 81 mg, UNK

REACTIONS (3)
  - Malaise [Not Recovered/Not Resolved]
  - Nasopharyngitis [Not Recovered/Not Resolved]
  - Cough [Not Recovered/Not Resolved]
